FAERS Safety Report 21952005 (Version 2)
Quarter: 2023Q1

REPORT INFORMATION
  Report Type: Spontaneous
  Country: ES (occurrence: ES)
  Receive Date: 20230203
  Receipt Date: 20230213
  Transmission Date: 20230417
  Serious: Yes (Death, Other)
  Sender: FDA-Public Use
  Company Number: None

PATIENT
  Age: 64 Year
  Sex: Female

DRUGS (1)
  1. TRODELVY [Suspect]
     Active Substance: SACITUZUMAB GOVITECAN-HZIY
     Indication: Breast cancer
     Dosage: 200 MG POWDER FOR CONCENTRATE FOR  SOLUTION FOR INFUSION, 1 VIAL,1 CYCLE (D1 AND D8)
     Route: 042
     Dates: start: 20221209, end: 20221216

REACTIONS (3)
  - Mucosal inflammation [Fatal]
  - Agranulocytosis [Fatal]
  - Septic shock [Fatal]

NARRATIVE: CASE EVENT DATE: 20221222
